FAERS Safety Report 18548880 (Version 1)
Quarter: 2020Q4

REPORT INFORMATION
  Report Type: Spontaneous
  Country: US (occurrence: US)
  Receive Date: 20201125
  Receipt Date: 20201125
  Transmission Date: 20210114
  Serious: Yes (Other)
  Sender: FDA-Public Use
  Company Number: US-BAXTER-2020BAX023853

PATIENT

DRUGS (1)
  1. PRISMASOL BGK2/3.5 [Suspect]
     Active Substance: ANHYDROUS DEXTROSE\CALCIUM CHLORIDE\LACTIC ACID\MAGNESIUM CHLORIDE\POTASSIUM CHLORIDE\SODIUM BICARBONATE\SODIUM CHLORIDE
     Indication: CONTINUOUS HAEMODIAFILTRATION
     Dosage: VIA PRISMAX MACHINE AND SET TYPE: M150
     Route: 010
     Dates: start: 20201116

REACTIONS (7)
  - Haemodialysis complication [Unknown]
  - Blood lactic acid increased [Unknown]
  - Hyperkalaemia [Unknown]
  - Anaemia [Unknown]
  - Hypotension [Recovering/Resolving]
  - Somnolence [Unknown]
  - Drug monitoring procedure incorrectly performed [Unknown]

NARRATIVE: CASE EVENT DATE: 20201116
